FAERS Safety Report 12861691 (Version 1)
Quarter: 2016Q4

REPORT INFORMATION
  Report Type: Spontaneous
  Country: US (occurrence: US)
  Receive Date: 20161019
  Receipt Date: 20161019
  Transmission Date: 20170207
  Serious: No
  Sender: FDA-Public Use
  Company Number: US-PFIZER INC-2016486443

PATIENT

DRUGS (3)
  1. LYRICA [Suspect]
     Active Substance: PREGABALIN
     Dosage: THREE
  2. LYRICA [Suspect]
     Active Substance: PREGABALIN
     Dosage: TWO
  3. LYRICA [Suspect]
     Active Substance: PREGABALIN
     Dosage: ONE

REACTIONS (1)
  - Insomnia [Unknown]
